FAERS Safety Report 9540332 (Version 5)
Quarter: 2015Q2

REPORT INFORMATION
  Report Type: Spontaneous
  Country: CA (occurrence: CA)
  Receive Date: 20130920
  Receipt Date: 20150623
  Transmission Date: 20150821
  Serious: Yes (Other)
  Sender: FDA-Public Use
  Company Number: CA-GLAXOSMITHKLINE-A0969878A

PATIENT
  Age: 41 Year
  Sex: Female
  Weight: 63 kg

DRUGS (5)
  1. PREDNISONE. [Concomitant]
     Active Substance: PREDNISONE
     Indication: SYSTEMIC LUPUS ERYTHEMATOSUS
     Route: 065
  2. BENLYSTA [Suspect]
     Active Substance: BELIMUMAB
     Dosage: 650, 4 WEEKS
  3. BENLYSTA [Suspect]
     Active Substance: BELIMUMAB
     Indication: SYSTEMIC LUPUS ERYTHEMATOSUS
     Dosage: WEEK 0, 2, 4, THEN EVERY 4 WEEKSFOLLOW UP 17 SEP2013  - DOSE IS 620 MG
     Route: 042
     Dates: start: 20120301
  4. CELLCEPT [Concomitant]
     Active Substance: MYCOPHENOLATE MOFETIL\MYCOPHENOLATE MOFETIL HYDROCHLORIDE
     Indication: SYSTEMIC LUPUS ERYTHEMATOSUS
     Route: 065
  5. PLAQUENIL [Concomitant]
     Active Substance: HYDROXYCHLOROQUINE SULFATE
     Indication: SYSTEMIC LUPUS ERYTHEMATOSUS
     Dosage: 400MG 4 DAYS OF THE WEEK AND 200MG 2 DAYS OF THE WEEK
     Route: 065

REACTIONS (10)
  - Rash [Recovering/Resolving]
  - Tooth infection [Unknown]
  - Overdose [Unknown]
  - Dizziness [Not Recovered/Not Resolved]
  - Influenza [Unknown]
  - Weight decreased [Unknown]
  - Activities of daily living impaired [Unknown]
  - Acne [Recovering/Resolving]
  - Arthritis [Recovered/Resolved]
  - Pruritus [Recovered/Resolved]

NARRATIVE: CASE EVENT DATE: 201203
